FAERS Safety Report 23607223 (Version 2)
Quarter: 2024Q2

REPORT INFORMATION
  Report Type: Spontaneous
  Country: DE (occurrence: DE)
  Receive Date: 20240307
  Receipt Date: 20240403
  Transmission Date: 20240716
  Serious: Yes (Hospitalization)
  Sender: FDA-Public Use
  Company Number: DE-ROCHE-3506315

PATIENT
  Age: 69 Year
  Sex: Male

DRUGS (8)
  1. CARBOPLATIN [Suspect]
     Active Substance: CARBOPLATIN
     Indication: Diffuse large B-cell lymphoma
     Dosage: WILL BE ADMINISTERED ON CYCLE DAY 2
     Route: 042
     Dates: start: 20240124, end: 20240124
  2. ETOPOSIDE [Suspect]
     Active Substance: ETOPOSIDE
     Indication: Diffuse large B-cell lymphoma
     Dosage: 100 MG/M2 WILL BE ADMINISTERED ON CYCLE DAYS 1, 2 AND 3
     Route: 042
     Dates: start: 20240123, end: 20240125
  3. IFOSFAMIDE [Suspect]
     Active Substance: IFOSFAMIDE
     Indication: Diffuse large B-cell lymphoma
     Dosage: 5000 MG/M2 WILL BE ADMINISTERED OVER A 24 HR PERIOD STARTING ON CYCLE DAY 2
     Route: 042
     Dates: start: 20240124, end: 20240125
  4. POLATUZUMAB VEDOTIN [Suspect]
     Active Substance: POLATUZUMAB VEDOTIN
     Indication: Diffuse large B-cell lymphoma
     Dosage: 1.8 MG/KG ON DAY 1 OF EACH 21-DAY CYCLE FOR UP TO 3 CYCLES (AS PER PROTOCOL)
     Route: 042
     Dates: start: 20240123, end: 20240123
  5. RITUXIMAB [Suspect]
     Active Substance: RITUXIMAB
     Indication: Diffuse large B-cell lymphoma
     Dosage: 375 MG/M2 ON DAY 1 OF EACH 21-DAY CYCLE FOR UP TO 3 CYCLES
     Route: 042
     Dates: start: 20240123, end: 20240123
  6. AMLODIPINE [Concomitant]
     Active Substance: AMLODIPINE BESYLATE
     Indication: Product used for unknown indication
     Dosage: UNK
     Route: 065
  7. HYDROCHLOROTHIAZIDE [Concomitant]
     Active Substance: HYDROCHLOROTHIAZIDE
     Indication: Product used for unknown indication
     Dosage: UNK
     Route: 065
  8. OLMESARTAN [Concomitant]
     Active Substance: OLMESARTAN
     Indication: Product used for unknown indication
     Dosage: UNK
     Route: 065

REACTIONS (2)
  - COVID-19 [Recovered/Resolved]
  - Escherichia bacteraemia [Recovered/Resolved]

NARRATIVE: CASE EVENT DATE: 20240202
